FAERS Safety Report 9103205 (Version 5)
Quarter: 2013Q3

REPORT INFORMATION
  Report Type: Report from Study
  Country: GB (occurrence: GB)
  Receive Date: 20130219
  Receipt Date: 20130813
  Transmission Date: 20140515
  Serious: Yes (Hospitalization, Other)
  Sender: FDA-Public Use
  Company Number: PHHY2013GB014280

PATIENT
  Age: 48 Year
  Sex: Female

DRUGS (8)
  1. ICL670A [Suspect]
     Indication: HAEMOSIDEROSIS
     Dosage: UNK UKN, UNK
     Route: 048
     Dates: start: 20120822
  2. ACYCLOVIR [Concomitant]
     Indication: HERPES SIMPLEX
     Dosage: 400 MG, BID
  3. FOLIC ACID [Concomitant]
     Indication: HYPOVITAMINOSIS
     Dosage: 5MG, QD
  4. CHLORPHENAMINE [Concomitant]
     Indication: PRURITUS
     Dosage: 4 MG, QD
  5. FENTANYL [Concomitant]
     Indication: PAIN
     Dosage: 75 MG, UNK
     Route: 062
  6. PARACETAMOL [Concomitant]
     Indication: PAIN
     Dosage: 1000 MG, QD
  7. PENICILLIN CRYSTALLINE [Concomitant]
     Indication: PROPHYLAXIS
     Dosage: 250 MG, BID
  8. TRAMADOL [Concomitant]
     Dosage: 50 MG, QD

REACTIONS (11)
  - Sickle cell anaemia with crisis [Recovered/Resolved]
  - Dyspnoea [Unknown]
  - Lung disorder [Unknown]
  - Chest pain [Recovered/Resolved]
  - Atelectasis [Unknown]
  - Pain in extremity [Unknown]
  - Swelling [Recovered/Resolved]
  - Vulvovaginal candidiasis [Unknown]
  - Urinary tract infection [Unknown]
  - Renal failure acute [Unknown]
  - Postmenopausal haemorrhage [Unknown]
